FAERS Safety Report 6701818-2 (Version None)
Quarter: 2010Q2

REPORT INFORMATION
  Report Type: 
  Country: None (occurrence: None)
  Receive Date: 20100429
  Receipt Date: 20100420
  Transmission Date: 20101027
  Serious: Yes (Death, Hospitalization)
  Sender: FDA-Public Use
  Company Number: GR-MPIJNJ-2010-01962

PATIENT

DRUGS (1)
  1. VELCADE [Suspect]
     Dosage: UNK
     Route: 042
     Dates: start: 20100319, end: 20100326

REACTIONS (2)
  - CELLULITIS [None]
  - DEATH [None]
